FAERS Safety Report 9415441 (Version 2)
Quarter: 2013Q4

REPORT INFORMATION
  Report Type: Spontaneous
  Country: US (occurrence: US)
  Receive Date: 20130723
  Receipt Date: 20131021
  Transmission Date: 20140711
  Serious: No
  Sender: FDA-Public Use
  Company Number: US-PFIZER INC-2013209599

PATIENT
  Age: 48 Year
  Sex: Female

DRUGS (2)
  1. SOMAVERT [Suspect]
     Indication: ACROMEGALY
     Dosage: 60 MG, DAILY
     Route: 058
  2. SOMAVERT [Suspect]
     Indication: GIGANTISM
     Dosage: UNK

REACTIONS (5)
  - Injection site bruising [Unknown]
  - Injection site pruritus [Unknown]
  - Bone pain [Unknown]
  - Paraesthesia [Unknown]
  - Constipation [Unknown]
